FAERS Safety Report 8872282 (Version 2)
Quarter: 2012Q4

REPORT INFORMATION
  Report Type: 
  Country: TW (occurrence: TW)
  Receive Date: 20121030
  Receipt Date: 20121207
  Transmission Date: 20130627
  Serious: Yes (Death)
  Sender: FDA-Public Use
  Company Number: TW-ABBOTT-12P-153-1001560-00

PATIENT
  Sex: Male
  Weight: 44.85 kg

DRUGS (7)
  1. HUMIRA [Suspect]
     Indication: CROHN^S DISEASE
     Route: 058
  2. PENTASA SR [Concomitant]
     Indication: PRODUCT USED FOR UNKNOWN INDICATION
     Dosage: TAB 500 2
     Route: 048
     Dates: end: 20120914
  3. NEUROPAM [Concomitant]
     Indication: PRODUCT USED FOR UNKNOWN INDICATION
     Dosage: #^ inj 2 mg 1 AMP IVA ST
     Dates: start: 20120901, end: 20120902
  4. MORPHINE HCL [Concomitant]
     Indication: PRODUCT USED FOR UNKNOWN INDICATION
     Dosage: #} INJ 5 MG IVA ST
     Dates: start: 20120911, end: 20120912
  5. MORPHINE HCL [Concomitant]
     Dosage: #} INJ 5 MG IVA STAT
     Dates: start: 20120912, end: 20120913
  6. CATAFLAM SC [Concomitant]
     Indication: PRODUCT USED FOR UNKNOWN INDICATION
     Dosage: TAB 25 1 TAB ST
     Route: 048
     Dates: start: 20120912, end: 20120913
  7. GASCON [Concomitant]
     Dosage: ST
     Route: 048
     Dates: start: 20120913, end: 20120914

REACTIONS (1)
  - Completed suicide [Fatal]
